FAERS Safety Report 8153980-5 (Version None)
Quarter: 2012Q1

REPORT INFORMATION
  Report Type: 
  Country: None (occurrence: None)
  Receive Date: 20120221
  Receipt Date: 20120221
  Transmission Date: 20120608
  Serious: Yes (Death)
  Sender: FDA-Public Use
  Company Number: None

PATIENT
  Age: 60 Year
  Sex: Male
  Weight: 70.306 kg

DRUGS (2)
  1. MIRTAZAPINE [Suspect]
     Indication: PARANOIA
     Dosage: 1 TABLET AT BEDTIME
     Dates: start: 20111111, end: 20111210
  2. MIRTAZAPINE [Suspect]
     Indication: ANXIETY
     Dosage: 1 TABLET AT BEDTIME
     Dates: start: 20111111, end: 20111210

REACTIONS (1)
  - COMPLETED SUICIDE [None]
